FAERS Safety Report 8623351-3 (Version None)
Quarter: 2012Q3

REPORT INFORMATION
  Report Type: 
  Country: None (occurrence: None)
  Receive Date: 20120827
  Receipt Date: 20120821
  Transmission Date: 20120928
  Serious: Yes (Hospitalization)
  Sender: FDA-Public Use
  Company Number: US-JNJFOC-20120207493

PATIENT
  Sex: Female
  Weight: 45 kg

DRUGS (7)
  1. REMICADE [Suspect]
     Indication: CROHN'S DISEASE
     Route: 042
  2. IMURAN [Concomitant]
     Route: 048
  3. REMICADE [Suspect]
     Route: 042
     Dates: start: 20120118
  4. IMURAN [Concomitant]
     Route: 048
  5. REMICADE [Suspect]
     Route: 042
     Dates: start: 20120207
  6. REMICADE [Suspect]
     Route: 042
     Dates: start: 20120103
  7. ANTIBIOTICS FOR IBD [Concomitant]
     Indication: INFLAMMATORY BOWEL DISEASE

REACTIONS (3)
  - PANCREATITIS ACUTE [None]
  - INTESTINAL FISTULA [None]
  - SMALL INTESTINAL OBSTRUCTION [None]
